FAERS Safety Report 10059780 (Version 1)
Quarter: 2014Q2

REPORT INFORMATION
  Report Type: Spontaneous
  Country: US (occurrence: None)
  Receive Date: 20140402
  Receipt Date: 20140402
  Transmission Date: 20141212
  Serious: Yes (Life-Threatening, Hospitalization, Other)
  Sender: FDA-Public Use
  Company Number: AUR-APL-2014-03902

PATIENT
  Age: 50 Year
  Sex: Male

DRUGS (2)
  1. AMPICILLIN (AMPICILLIN) [Suspect]
     Indication: CELLULITIS
     Route: 042
  2. SODIUM CHLORIDE (SODIUM CHLORIDE) [Concomitant]
     Indication: PRODUCT USED FOR UNKNOWN INDICATION
     Dosage: 60 ML, 1 HR

REACTIONS (10)
  - Wheezing [None]
  - Dyspnoea [None]
  - Urticaria [None]
  - Dizziness [None]
  - Abdominal pain [None]
  - Flushing [None]
  - Sinus tachycardia [None]
  - Dyspnoea [None]
  - Anaphylactic reaction [None]
  - Oxygen saturation decreased [None]
